FAERS Safety Report 18457535 (Version 1)
Quarter: 2020Q4

REPORT INFORMATION
  Report Type: Report from Study
  Country: US (occurrence: US)
  Receive Date: 20201030
  Receipt Date: 20201030
  Transmission Date: 20210114
  Serious: Yes (Other)
  Sender: FDA-Public Use
  Company Number: US-TAKEDA-2020TUS046145

PATIENT
  Sex: Female

DRUGS (4)
  1. URSODIOL. [Concomitant]
     Active Substance: URSODIOL
     Dosage: UNK
  2. HYDROCORTISONE. [Concomitant]
     Active Substance: HYDROCORTISONE
     Dosage: UNK
  3. VEDOLIZUMAB [Suspect]
     Active Substance: VEDOLIZUMAB
     Indication: INFLAMMATORY BOWEL DISEASE
     Dosage: UNK
     Route: 042
     Dates: start: 20180914
  4. AZATHIOPRINE. [Concomitant]
     Active Substance: AZATHIOPRINE
     Dosage: UNK

REACTIONS (3)
  - Blood alkaline phosphatase increased [Not Recovered/Not Resolved]
  - Rectal haemorrhage [Recovered/Resolved]
  - Pseudopolyposis [Not Recovered/Not Resolved]

NARRATIVE: CASE EVENT DATE: 20200507
